FAERS Safety Report 24143194 (Version 2)
Quarter: 2024Q3

REPORT INFORMATION
  Report Type: Report from Study
  Country: JP (occurrence: JP)
  Receive Date: 20240726
  Receipt Date: 20240820
  Transmission Date: 20241016
  Serious: Yes (Death, Other)
  Sender: ALNYLAM PHARMACEUTICALS
  Company Number: JP-ALNYLAM PHARMACEUTICALS, INC.-ALN-2023-005792

PATIENT

DRUGS (5)
  1. AMVUTTRA [Suspect]
     Active Substance: VUTRISIRAN
     Indication: Hereditary neuropathic amyloidosis
     Dosage: 25 MILLIGRAM, Q3M
     Route: 058
     Dates: start: 20221222, end: 20240314
  2. VITAMINS [Concomitant]
     Active Substance: VITAMINS
     Indication: Vitamin supplementation
     Dosage: 1 G/DAY
     Route: 048
     Dates: start: 20221222, end: 20240314
  3. CYCLOSPORINE [Concomitant]
     Active Substance: CYCLOSPORINE
     Indication: Liver transplant
     Dosage: 200~300 MG/DAY
     Route: 048
     Dates: end: 20240314
  4. NAUZELIN [Concomitant]
     Active Substance: DOMPERIDONE
     Indication: Hereditary neuropathic amyloidosis
     Dosage: 30 MG/DAY
     Route: 048
     Dates: end: 20240314
  5. URSO [Concomitant]
     Active Substance: URSODIOL
     Indication: Liver transplant
     Dosage: 900 MG/DAY
     Route: 048
     Dates: end: 20240314

REACTIONS (2)
  - Cardiac failure [Fatal]
  - Congestive hepatopathy [Fatal]

NARRATIVE: CASE EVENT DATE: 20230622
